FAERS Safety Report 7712127-7 (Version None)
Quarter: 2011Q3

REPORT INFORMATION
  Report Type: 
  Country: None (occurrence: None)
  Receive Date: 20110826
  Receipt Date: 20110818
  Transmission Date: 20111222
  Serious: Yes (Other)
  Sender: FDA-Public Use
  Company Number: AU-JNJFOC-20110808071

PATIENT
  Sex: Female

DRUGS (7)
  1. ATROVENT [Concomitant]
     Indication: ILL-DEFINED DISORDER
  2. PRAVACHOL [Concomitant]
     Indication: ILL-DEFINED DISORDER
  3. ARIMIDEX [Concomitant]
     Indication: ILL-DEFINED DISORDER
  4. VENTOLIN HFA [Concomitant]
     Indication: ILL-DEFINED DISORDER
  5. PERINDOPRIL ERBUMINE [Concomitant]
     Indication: ILL-DEFINED DISORDER
  6. XARELTO [Suspect]
     Indication: HIP ARTHROPLASTY
     Route: 048
  7. XARELTO [Suspect]
     Indication: KNEE ARTHROPLASTY
     Route: 048

REACTIONS (1)
  - PULMONARY EMBOLISM [None]
